FAERS Safety Report 22290259 (Version 1)
Quarter: 2023Q2

REPORT INFORMATION
  Report Type: Spontaneous
  Country: US (occurrence: US)
  Receive Date: 20230505
  Receipt Date: 20230505
  Transmission Date: 20230721
  Serious: No
  Sender: FDA-Public Use
  Company Number: US-BRISTOL-MYERS SQUIBB COMPANY-2023-064479

PATIENT
  Age: 43 Year
  Sex: Male

DRUGS (1)
  1. ZEPOSIA [Suspect]
     Active Substance: OZANIMOD HYDROCHLORIDE
     Indication: Multiple sclerosis
     Dosage: ONGOING
     Route: 048
     Dates: start: 20200601

REACTIONS (3)
  - Fatigue [Unknown]
  - Asthenia [Unknown]
  - Bradykinesia [Unknown]
